FAERS Safety Report 9696672 (Version 2)
Quarter: 2013Q4

REPORT INFORMATION
  Report Type: Spontaneous
  Country: US (occurrence: US)
  Receive Date: 20131119
  Receipt Date: 20131224
  Transmission Date: 20140711
  Serious: Yes (Hospitalization, Other)
  Sender: FDA-Public Use
  Company Number: US-UCBSA-103453

PATIENT
  Age: 58 Year
  Sex: Female
  Weight: 90.7 kg

DRUGS (14)
  1. CIMZIA [Suspect]
     Indication: RHEUMATOID ARTHRITIS
     Route: 058
     Dates: start: 20130625, end: 201307
  2. CELLCEPT [Suspect]
  3. IMURAN [Concomitant]
     Indication: RHEUMATOID ARTHRITIS
     Route: 048
     Dates: start: 2012
  4. PREDNISONE [Concomitant]
     Indication: SWELLING
     Dosage: 5-10 MG.
     Route: 048
  5. PREDNISONE [Concomitant]
     Indication: SWELLING
     Dosage: DOSE DECRESE
     Route: 048
  6. PRISTIQUE [Concomitant]
     Indication: DEPRESSION
     Route: 048
  7. OMEPRAZOLE [Concomitant]
     Indication: GASTROOESOPHAGEAL REFLUX DISEASE
     Route: 048
  8. LISINOPRIL [Concomitant]
     Indication: BLOOD PRESSURE INCREASED
     Route: 048
  9. AMBIEN [Concomitant]
     Indication: SLEEP DISORDER
     Dosage: EVERY EVENING
     Route: 048
  10. TRAMADOL [Concomitant]
     Indication: PAIN
     Dosage: 1-2 TABS THREE TIMES A DAY
     Route: 048
  11. FLONASE [Concomitant]
     Indication: HYPERSENSITIVITY
     Dosage: SQUIRT IN EACH NOSTRIL EVERY MORNING
     Route: 045
  12. CETRIZINE HYDROCHLORIDE [Concomitant]
     Indication: HYPERSENSITIVITY
     Route: 048
  13. BABY ASA [Concomitant]
     Indication: CARDIAC DISORDER
     Route: 048
  14. MULTIVITAMIN [Concomitant]
     Indication: NUTRITIONAL SUPPLEMENTATION
     Route: 048

REACTIONS (3)
  - Cellulitis [Recovered/Resolved]
  - Herpes zoster [Recovering/Resolving]
  - Dyspnoea [Recovered/Resolved]
